FAERS Safety Report 9097254 (Version 4)
Quarter: 2013Q2

REPORT INFORMATION
  Report Type: Report from Study
  Country: US (occurrence: US)
  Receive Date: 20130212
  Receipt Date: 20130612
  Transmission Date: 20140414
  Serious: Yes (Hospitalization)
  Sender: FDA-Public Use
  Company Number: US-JNJFOC-20130204157

PATIENT
  Age: 21 Year
  Sex: Male
  Weight: 83.2 kg

DRUGS (3)
  1. REMICADE [Suspect]
     Indication: CROHN^S DISEASE
     Route: 042
     Dates: start: 20060401
  2. AZATHIOPRINE [Concomitant]
  3. LOPERAMIDE [Concomitant]

REACTIONS (1)
  - Pharyngitis streptococcal [Recovered/Resolved]
